FAERS Safety Report 8430147-4 (Version None)
Quarter: 2012Q2

REPORT INFORMATION
  Report Type: 
  Country: None (occurrence: None)
  Receive Date: 20120612
  Receipt Date: 20120608
  Transmission Date: 20120825
  Serious: Yes (Hospitalization, Disabling, Other)
  Sender: FDA-Public Use
  Company Number: US-MERCK-1203USA03369

PATIENT
  Age: 42 Year
  Sex: Female
  Weight: 80 kg

DRUGS (8)
  1. BONIVA [Suspect]
     Indication: OSTEOPENIA
     Route: 048
     Dates: start: 19960101, end: 20110630
  2. FOSAMAX [Suspect]
     Indication: SCOLIOSIS
     Route: 048
     Dates: start: 19960101, end: 20100614
  3. VITAMINS (UNSPECIFIED) [Concomitant]
     Dosage: 25 YRS
     Route: 065
  4. BONIVA [Suspect]
     Indication: SCOLIOSIS
     Route: 048
     Dates: start: 19960101, end: 20110630
  5. FOSAMAX [Suspect]
     Indication: OSTEOPOROSIS
     Route: 048
     Dates: start: 20020701, end: 20110601
  6. FOSAMAX [Suspect]
     Indication: OSTEOPENIA
     Route: 048
     Dates: start: 19960101, end: 20100614
  7. OMEPRAZOLE [Concomitant]
     Dosage: TO PRESENT
     Route: 065
     Dates: start: 20020101
  8. FOSAMAX [Suspect]
     Route: 048
     Dates: start: 20020701, end: 20110601

REACTIONS (25)
  - UTERINE DISORDER [None]
  - EXOSTOSIS [None]
  - TOOTH DISORDER [None]
  - GOITRE [None]
  - FEMUR FRACTURE [None]
  - URINARY TRACT INFECTION [None]
  - HYPERCHOLESTEROLAEMIA [None]
  - OSTEOPOROSIS [None]
  - STRESS FRACTURE [None]
  - ADVERSE EVENT [None]
  - IMPAIRED HEALING [None]
  - FATIGUE [None]
  - HYPERTENSION [None]
  - IRRITABLE BOWEL SYNDROME [None]
  - PLANTAR FASCIITIS [None]
  - VENOUS INSUFFICIENCY [None]
  - OFF LABEL USE [None]
  - LIP DRY [None]
  - DIZZINESS [None]
  - BENIGN BREAST NEOPLASM [None]
  - LOW TURNOVER OSTEOPATHY [None]
  - DEEP VEIN THROMBOSIS [None]
  - INTERNATIONAL NORMALISED RATIO INCREASED [None]
  - GASTROOESOPHAGEAL REFLUX DISEASE [None]
  - ATRIAL FIBRILLATION [None]
